FAERS Safety Report 6580108-5 (Version None)
Quarter: 2010Q1

REPORT INFORMATION
  Report Type: 
  Country: None (occurrence: None)
  Receive Date: 20100212
  Receipt Date: 20100205
  Transmission Date: 20100710
  Serious: Yes (Other)
  Sender: FDA-Public Use
  Company Number: GB-PFIZER INC-2010015288

PATIENT
  Age: 52 Year
  Sex: Male

DRUGS (4)
  1. GABAPENTIN [Suspect]
     Indication: NEURALGIA
     Dosage: 900 MG, 1X/DAY
  2. AMITRIPTYLINE [Suspect]
     Indication: NEURALGIA
     Dosage: UNK
  3. AMLODIPINE [Concomitant]
  4. RANITIDINE [Concomitant]

REACTIONS (2)
  - ERECTILE DYSFUNCTION [None]
  - HYPOAESTHESIA [None]
